FAERS Safety Report 8048094-9 (Version None)
Quarter: 2012Q1

REPORT INFORMATION
  Report Type: 
  Country: None (occurrence: None)
  Receive Date: 20120112
  Receipt Date: 20120112
  Transmission Date: 20120608
  Serious: No
  Sender: FDA-Public Use
  Company Number: None

PATIENT
  Age: 89 Year
  Sex: Male
  Weight: 168 kg

DRUGS (1)
  1. MULTAQ [Suspect]
     Dosage: 1 TABLET TWICE DAILY
     Dates: start: 20110926, end: 20111125

REACTIONS (5)
  - DYSPEPSIA [None]
  - FLATULENCE [None]
  - ERUCTATION [None]
  - CHEST DISCOMFORT [None]
  - ALOPECIA [None]
